FAERS Safety Report 9283712 (Version 2)
Quarter: 2013Q2

REPORT INFORMATION
  Report Type: Spontaneous
  Country: US (occurrence: US)
  Receive Date: 20130510
  Receipt Date: 20130626
  Transmission Date: 20140414
  Serious: Yes (Other)
  Sender: FDA-Public Use
  Company Number: US-ELI_LILLY_AND_COMPANY-US201305001177

PATIENT
  Sex: Female
  Weight: 58.96 kg

DRUGS (1)
  1. FORTEO [Suspect]
     Dosage: 20 UG, QD
     Route: 058
     Dates: start: 201112

REACTIONS (3)
  - Coronary artery restenosis [Unknown]
  - Neck pain [Unknown]
  - Dyspnoea [Unknown]
